FAERS Safety Report 24703272 (Version 2)
Quarter: 2024Q4

REPORT INFORMATION
  Report Type: Report from Study
  Country: AU (occurrence: AU)
  Receive Date: 20241205
  Receipt Date: 20241214
  Transmission Date: 20250114
  Serious: Yes (Hospitalization, Other)
  Sender: JOHNSON AND JOHNSON
  Company Number: AU-JNJFOC-20240421004

PATIENT
  Age: 69 Year
  Sex: Female

DRUGS (19)
  1. MACITENTAN [Suspect]
     Active Substance: MACITENTAN
     Indication: Product used for unknown indication
     Route: 048
     Dates: start: 20231129
  2. SELEXIPAG [Suspect]
     Active Substance: SELEXIPAG
     Indication: Pulmonary arterial hypertension
     Dosage: 800MCG IN THE MORNING AND 1000MCG IN THE EVENING
     Route: 048
     Dates: start: 20240415
  3. SELEXIPAG [Suspect]
     Active Substance: SELEXIPAG
     Dosage: 200MCG IN THE MORNING AND 400MCG IN THE EVENING
     Route: 048
  4. SELEXIPAG [Suspect]
     Active Substance: SELEXIPAG
     Route: 048
     Dates: start: 20240415
  5. SELEXIPAG [Suspect]
     Active Substance: SELEXIPAG
     Route: 048
     Dates: start: 20240415
  6. SELEXIPAG [Suspect]
     Active Substance: SELEXIPAG
     Route: 048
  7. SELEXIPAG [Suspect]
     Active Substance: SELEXIPAG
     Route: 048
  8. PALEXIA [Suspect]
     Active Substance: TAPENTADOL HYDROCHLORIDE
     Indication: Product used for unknown indication
     Route: 065
  9. PANADOL [Concomitant]
     Active Substance: ACETAMINOPHEN
     Indication: Headache
  10. PANADOL [Concomitant]
     Active Substance: ACETAMINOPHEN
     Indication: Myalgia
  11. LYRICA [Concomitant]
     Active Substance: PREGABALIN
     Indication: Neurological symptom
     Dosage: CHANGE TO DOSES POST SPINAL SURGERY 75MG AM AND 50MG PM
     Route: 048
  12. LYRICA [Concomitant]
     Active Substance: PREGABALIN
     Indication: Pain
  13. LYRICA [Concomitant]
     Active Substance: PREGABALIN
     Indication: Back injury
  14. MINOXIDIL [Concomitant]
     Active Substance: MINOXIDIL
     Indication: Androgenetic alopecia
  15. SILDENAFIL [Concomitant]
     Active Substance: SILDENAFIL
     Indication: Pulmonary hypertension
     Route: 048
  16. MAGNESIUM [Concomitant]
     Active Substance: MAGNESIUM
     Indication: Blood magnesium decreased
     Route: 048
  17. VITAMIN D [Concomitant]
     Active Substance: VITAMIN D NOS
  18. TADALAFIL [Concomitant]
     Active Substance: TADALAFIL
  19. ACETAMINOPHEN [Concomitant]
     Active Substance: ACETAMINOPHEN

REACTIONS (19)
  - Nausea [Recovered/Resolved]
  - Diverticulitis [Recovered/Resolved]
  - Spinal laminectomy [Recovering/Resolving]
  - Fatigue [Not Recovered/Not Resolved]
  - Swelling face [Recovered/Resolved]
  - Gastrooesophageal reflux disease [Recovering/Resolving]
  - Headache [Recovered/Resolved]
  - Flushing [Recovered/Resolved]
  - Myalgia [Recovered/Resolved]
  - Nasal obstruction [Recovered/Resolved]
  - Anal sphincter atony [Not Recovered/Not Resolved]
  - Back pain [Recovering/Resolving]
  - Pain in extremity [Unknown]
  - Neuralgia [Recovering/Resolving]
  - Pain in jaw [Recovered/Resolved]
  - Anal fistula [Not Recovered/Not Resolved]
  - Diarrhoea [Not Recovered/Not Resolved]
  - Urinary tract infection [Recovering/Resolving]
  - Tendon pain [Recovering/Resolving]
